FAERS Safety Report 21889666 (Version 1)
Quarter: 2023Q1

REPORT INFORMATION
  Report Type: Spontaneous
  Country: US (occurrence: None)
  Receive Date: 20230119
  Receipt Date: 20230119
  Transmission Date: 20230418
  Serious: No
  Sender: FDA-Public Use
  Company Number: None

PATIENT
  Sex: Female

DRUGS (1)
  1. XELJANZ XR [Suspect]
     Active Substance: TOFACITINIB CITRATE
     Indication: Rheumatoid arthritis
     Dosage: 11MG ONCE DAILY BY MOUTH
     Route: 048
     Dates: start: 20230104

REACTIONS (4)
  - Therapy non-responder [None]
  - Fatigue [None]
  - Headache [None]
  - Abdominal discomfort [None]
